FAERS Safety Report 7315306-6 (Version None)
Quarter: 2011Q1

REPORT INFORMATION
  Report Type: 
  Country: None (occurrence: None)
  Receive Date: 20110225
  Receipt Date: 20110217
  Transmission Date: 20110831
  Serious: Yes (Other)
  Sender: FDA-Public Use
  Company Number: PHHY2010US07954

PATIENT
  Sex: Female

DRUGS (14)
  1. EXTAVIA [Suspect]
     Indication: MULTIPLE SCLEROSIS
     Dosage: 0.25 MG (1 ML), QOD
     Route: 058
     Dates: start: 20100206
  2. EXTAVIA [Suspect]
     Dosage: 0.25 MG (1 ML), QOD
     Route: 058
  3. METHYLDOPA [Concomitant]
     Indication: HYPERTENSION
     Dosage: 250 MG, BID
  4. MULTI-VITAMINS [Concomitant]
     Dosage: UNK
  5. HYDROCHLORIC ACID [Concomitant]
     Dosage: 25 MG, UNK
  6. EXTAVIA [Suspect]
     Dosage: 0.125 MG, QOD
     Route: 058
     Dates: start: 20100224
  7. POTASSIUM [Concomitant]
     Dosage: 10 MEQ, TID
  8. KLOR-CON [Concomitant]
     Dosage: 10 TABLET 10 MEQ ER
  9. TYLENOL [Concomitant]
  10. CALCIUM WITH VITAMIN D [Concomitant]
     Dosage: UNK
  11. HYDROCHLOROTHIAZIDE [Concomitant]
     Dosage: 12.5 MG, UNK
  12. LEVODOPA [Concomitant]
  13. EXTAVIA [Suspect]
     Dosage: 0.25 MG (1 ML), QOD
     Route: 058
     Dates: start: 20100206
  14. HYDROCORTISONE [Concomitant]

REACTIONS (14)
  - PANIC ATTACK [None]
  - SOMNOLENCE [None]
  - DECREASED INTEREST [None]
  - SOCIAL AVOIDANT BEHAVIOUR [None]
  - FEELING ABNORMAL [None]
  - FATIGUE [None]
  - CRYING [None]
  - INJECTION SITE ERYTHEMA [None]
  - INJECTION SITE SWELLING [None]
  - DEPRESSION [None]
  - INJECTION SITE HAEMATOMA [None]
  - IRRITABILITY [None]
  - INJECTION SITE PRURITUS [None]
  - HEADACHE [None]
